FAERS Safety Report 4455750-8 (Version None)
Quarter: 2004Q3

REPORT INFORMATION
  Report Type: 
  Country: None (occurrence: None)
  Receive Date: 20040920
  Receipt Date: 20040820
  Transmission Date: 20050211
  Serious: Yes (Death, Hospitalization)
  Sender: FDA-Public Use
  Company Number: 2004231213US

PATIENT
  Age: 69 Year
  Sex: Male

DRUGS (6)
  1. CELEBREX [Suspect]
     Indication: ARTHRITIS
     Dosage: 200 MG, BID, ORAL
     Route: 048
     Dates: start: 19991005, end: 20000329
  2. TRENTAL [Concomitant]
  3. QUININE SULFATE [Concomitant]
  4. CLONIDINE HCL [Concomitant]
  5. CARDURA [Concomitant]
  6. VERAPAMIL [Concomitant]

REACTIONS (30)
  - ABDOMINAL DISTENSION [None]
  - ABDOMINAL PAIN [None]
  - ABDOMINAL TENDERNESS [None]
  - ASTHENIA [None]
  - BODY TEMPERATURE INCREASED [None]
  - CARDIAC ARREST [None]
  - CHRONIC OBSTRUCTIVE AIRWAYS DISEASE [None]
  - CYANOSIS [None]
  - DIABETES MELLITUS NON-INSULIN-DEPENDENT [None]
  - DRUG LEVEL BELOW THERAPEUTIC [None]
  - ELECTROMECHANICAL DISSOCIATION [None]
  - GASTRIC ULCER [None]
  - HAEMATOCRIT DECREASED [None]
  - HEART RATE INCREASED [None]
  - HELICOBACTER INFECTION [None]
  - HYPERHIDROSIS [None]
  - HYPERTENSION [None]
  - HYPOVOLAEMIA [None]
  - INJECTION SITE CELLULITIS [None]
  - LOSS OF CONSCIOUSNESS [None]
  - MYOCARDIAL INFARCTION [None]
  - PEPTIC ULCER [None]
  - PNEUMONIA [None]
  - PULSE ABSENT [None]
  - RECTAL HAEMORRHAGE [None]
  - RESPIRATORY ARREST [None]
  - RESPIRATORY RATE INCREASED [None]
  - RESTRICTIVE PULMONARY DISEASE [None]
  - UPPER GASTROINTESTINAL HAEMORRHAGE [None]
  - VENTRICULAR EXTRASYSTOLES [None]
